FAERS Safety Report 9558259 (Version 2)
Quarter: 2013Q3

REPORT INFORMATION
  Report Type: Spontaneous
  Country: US (occurrence: US)
  Receive Date: 20130926
  Receipt Date: 20130926
  Transmission Date: 20140515
  Serious: Yes (Other)
  Sender: FDA-Public Use
  Company Number: US-SANOFI-AVENTIS-FABR-1003571

PATIENT
  Age: 36 Year
  Sex: Male
  Weight: 95 kg

DRUGS (10)
  1. FABRAZYME [Suspect]
     Indication: FABRY^S DISEASE
     Dosage: 1 MG/KG, Q2W
     Route: 042
     Dates: start: 20130124
  2. PREDNISONE [Suspect]
     Indication: PRODUCT USED FOR UNKNOWN INDICATION
     Route: 065
  3. LISINOPRIL [Concomitant]
  4. CELLCEPT [Concomitant]
     Dosage: DOSE:200 MILLIGRAM(S)/MILLILITRE
  5. ASPIRIN [Concomitant]
  6. LIPITOR [Concomitant]
  7. LASIX [Concomitant]
  8. AMOXIL [Concomitant]
  9. DEPO-TESTOSTERONE [Concomitant]
  10. PRILOSEC [Concomitant]

REACTIONS (1)
  - Osteonecrosis [Unknown]
